FAERS Safety Report 7827464-5 (Version None)
Quarter: 2011Q4

REPORT INFORMATION
  Report Type: 
  Country: None (occurrence: None)
  Receive Date: 20111019
  Receipt Date: 20111019
  Transmission Date: 20120403
  Serious: Yes (Other)
  Sender: FDA-Public Use
  Company Number: None

PATIENT
  Age: 70 Year
  Sex: Male
  Weight: 83.4619 kg

DRUGS (1)
  1. XELODA [Suspect]
     Indication: COLON CANCER

REACTIONS (2)
  - POST PROCEDURAL HAEMORRHAGE [None]
  - NAUSEA [None]
